FAERS Safety Report 10211186 (Version 1)
Quarter: 2014Q2

REPORT INFORMATION
  Report Type: Spontaneous
  Country: US (occurrence: US)
  Receive Date: 20140602
  Receipt Date: 20140602
  Transmission Date: 20141212
  Serious: No
  Sender: FDA-Public Use
  Company Number: US-ABBVIE-13P-163-1170295-00

PATIENT
  Sex: Female

DRUGS (2)
  1. MARINOL [Suspect]
     Indication: NAUSEA
     Dosage: UNKNOWN
     Dates: start: 2013
  2. FENTANYL [Concomitant]
     Indication: PAIN

REACTIONS (1)
  - Incorrect route of drug administration [Unknown]
